FAERS Safety Report 12683602 (Version 3)
Quarter: 2016Q3

REPORT INFORMATION
  Report Type: Report from Study
  Country: US (occurrence: US)
  Receive Date: 20160825
  Receipt Date: 20160930
  Transmission Date: 20161109
  Serious: Yes (Death, Other)
  Sender: FDA-Public Use
  Company Number: US-009507513-1608USA011090

PATIENT
  Age: 71 Year
  Sex: Male

DRUGS (1)
  1. KEYTRUDA [Suspect]
     Active Substance: PEMBROLIZUMAB
     Indication: NEOPLASM MALIGNANT
     Dosage: 2 MIL PER KILOGRAM EVERY 3 WEEKS
     Route: 042
     Dates: start: 20160629, end: 20160818

REACTIONS (1)
  - Death [Fatal]

NARRATIVE: CASE EVENT DATE: 20160818
